FAERS Safety Report 18988349 (Version 3)
Quarter: 2022Q3

REPORT INFORMATION
  Report Type: Spontaneous
  Country: JP (occurrence: JP)
  Receive Date: 20210309
  Receipt Date: 20220714
  Transmission Date: 20221027
  Serious: Yes (Death, Hospitalization, Other)
  Sender: FDA-Public Use
  Company Number: JP-GLAXOSMITHKLINE-JP2020JPN212384

PATIENT

DRUGS (17)
  1. DAPRODUSTAT [Suspect]
     Active Substance: DAPRODUSTAT
     Indication: Nephrogenic anaemia
     Dosage: 2 MG, QD
     Route: 048
     Dates: start: 20200925
  2. DAPRODUSTAT [Suspect]
     Active Substance: DAPRODUSTAT
     Dosage: 4 MG
     Route: 048
     Dates: start: 20201003
  3. SERETIDE [Suspect]
     Active Substance: FLUTICASONE PROPIONATE\SALMETEROL XINAFOATE
     Indication: Wheezing
     Dosage: UNK
     Route: 055
     Dates: start: 202010
  4. ROSUVASTATIN CALCIUM [Concomitant]
     Active Substance: ROSUVASTATIN CALCIUM
     Indication: Dyslipidaemia
     Dosage: 2.5 MG, QD
     Route: 048
  5. CANDESARTAN CILEXETIL TABLET [Concomitant]
     Indication: Hypertension
     Dosage: 2 MG, QD
     Route: 048
  6. EQUA TABLETS [Concomitant]
     Indication: Diabetes mellitus
     Dosage: 50 MG, BID
     Route: 048
  7. METHYLCOBALAMIN [Concomitant]
     Active Substance: METHYLCOBALAMIN
     Indication: Neuropathy peripheral
     Dosage: 150 ?G, TID
     Route: 048
  8. FUROSEMIDE [Concomitant]
     Active Substance: FUROSEMIDE
     Indication: Cardiac failure congestive
     Dosage: 60 ?G, 1D, 40 ?G IN THE MORNING AND 20 ?G AT NOON
     Route: 048
  9. SPIRONOLACTONE [Concomitant]
     Active Substance: SPIRONOLACTONE
     Indication: Cardiac failure congestive
     Dosage: 25 ?G, QD
     Route: 048
  10. KREMEZIN [Concomitant]
     Active Substance: ACTIVATED CHARCOAL
     Indication: Chronic kidney disease
     Dosage: 2.0 MG, BID
     Route: 048
  11. ESTRACYT CAPSULES (ESTRAMUSTINE PHOSPHATE SODIUM) [Concomitant]
     Indication: Prostate cancer
     Dosage: 2 DF, BID
     Route: 048
  12. PLAVIX TABLET [Concomitant]
     Dosage: 75 MG, QD
     Route: 048
  13. LANSOPRAZOLE [Concomitant]
     Active Substance: LANSOPRAZOLE
     Indication: Cerebral infarction
     Dosage: 30 MG, QD
     Route: 048
  14. INSULIN GLARGINE [Concomitant]
     Active Substance: INSULIN GLARGINE
     Indication: Diabetes mellitus
     Dosage: 14 UNIT
     Route: 058
     Dates: start: 201712
  15. INSULIN GLARGINE [Concomitant]
     Active Substance: INSULIN GLARGINE
     Dosage: 13 UNIT
  16. INSULIN GLARGINE [Concomitant]
     Active Substance: INSULIN GLARGINE
     Dosage: 7 UNIT
     Route: 058
  17. INSULIN GLARGINE [Concomitant]
     Active Substance: INSULIN GLARGINE
     Dosage: 6 UNIT
     Dates: start: 202010

REACTIONS (12)
  - Cardiac failure congestive [Recovering/Resolving]
  - Bacterial sepsis [Recovering/Resolving]
  - Hyperglycaemia [Fatal]
  - Hyperglycaemic hyperosmolar nonketotic syndrome [Fatal]
  - Bacterial infection [Fatal]
  - Physical deconditioning [Unknown]
  - Pyrexia [Unknown]
  - Wheezing [Unknown]
  - Pleural effusion [Unknown]
  - Blood pressure decreased [Unknown]
  - Product use in unapproved indication [Unknown]
  - Product use issue [Unknown]

NARRATIVE: CASE EVENT DATE: 20201001
